FAERS Safety Report 9424737 (Version 1)
Quarter: 2013Q3

REPORT INFORMATION
  Report Type: Report from Study
  Country: US (occurrence: US)
  Receive Date: 20130729
  Receipt Date: 20130729
  Transmission Date: 20140515
  Serious: Yes (Hospitalization)
  Sender: FDA-Public Use
  Company Number: US-SANOFI-AVENTIS-2012SA089094

PATIENT
  Age: 67 Year
  Sex: Male
  Weight: 77.8 kg

DRUGS (18)
  1. DOCETAXEL [Suspect]
     Indication: PROSTATE CANCER METASTATIC
     Route: 041
     Dates: start: 20121127, end: 20121127
  2. PREDNISONE [Suspect]
     Indication: PROSTATE CANCER METASTATIC
     Route: 048
     Dates: start: 20121127, end: 20121202
  3. POTASSIUM CHLORIDE [Concomitant]
     Indication: PROPHYLAXIS
     Route: 048
  4. DOCUSATE SODIUM [Concomitant]
     Indication: PROPHYLAXIS
     Route: 048
  5. FLOMAX [Concomitant]
     Route: 048
  6. AMLODIPINE [Concomitant]
     Route: 048
  7. CELEBREX [Concomitant]
     Indication: PROPHYLAXIS
     Route: 048
  8. CALCIUM [Concomitant]
     Indication: PROPHYLAXIS
     Route: 048
  9. VITAMIN D [Concomitant]
     Indication: PROPHYLAXIS
     Route: 048
  10. ENSURE [Concomitant]
     Indication: PROPHYLAXIS
     Route: 048
  11. LACTOBACILLUS REUTERI [Concomitant]
     Indication: PROPHYLAXIS
     Route: 048
  12. LISINOPRIL [Concomitant]
     Route: 048
  13. NYSTATIN [Concomitant]
     Route: 048
  14. OXYCODONE [Concomitant]
     Route: 048
  15. TYLENOL [Concomitant]
     Indication: PROPHYLAXIS
     Route: 048
  16. DEXAMETHASONE [Concomitant]
     Indication: PROPHYLAXIS
     Route: 048
     Dates: start: 20121127
  17. ONDANSETRON [Concomitant]
     Indication: PROPHYLAXIS
     Route: 048
  18. VACCINES [Concomitant]
     Indication: PROPHYLAXIS
     Route: 030
     Dates: start: 20121127, end: 20121127

REACTIONS (4)
  - Shock [Recovered/Resolved]
  - Angiodysplasia [Recovered/Resolved]
  - Renal failure acute [Recovered/Resolved]
  - Anaemia [Recovered/Resolved]
